FAERS Safety Report 11381915 (Version 1)
Quarter: 2015Q3

REPORT INFORMATION
  Report Type: Spontaneous
  Country: US (occurrence: US)
  Receive Date: 20150814
  Receipt Date: 20150814
  Transmission Date: 20151125
  Serious: Yes (Hospitalization, Other)
  Sender: FDA-Public Use
  Company Number: US-TEVA-586029USA

PATIENT
  Age: 24 Year
  Sex: Male

DRUGS (1)
  1. OXYMORPHONE HYDROCHLORIDE. [Suspect]
     Active Substance: OXYMORPHONE HYDROCHLORIDE
     Indication: DRUG ABUSE
     Dosage: 30MG OF CRUSHED TABLET
     Route: 055

REACTIONS (3)
  - Drug abuse [Recovered/Resolved]
  - Incorrect route of drug administration [Recovered/Resolved]
  - Deafness neurosensory [Recovered/Resolved]
